FAERS Safety Report 15736821 (Version 4)
Quarter: 2019Q2

REPORT INFORMATION
  Report Type: Report from Study
  Country: PL (occurrence: PL)
  Receive Date: 20181218
  Receipt Date: 20190523
  Transmission Date: 20190711
  Serious: Yes (Life-Threatening, Hospitalization)
  Sender: FDA-Public Use
  Company Number: PL-PFIZER INC-2018519184

PATIENT
  Age: 64 Year
  Sex: Male
  Weight: 74.5 kg

DRUGS (17)
  1. GLUCOPHAGE [Concomitant]
     Active Substance: METFORMIN HYDROCHLORIDE
  2. BISOCARD [Concomitant]
     Active Substance: BISOPROLOL
  3. DINUTUXIMAB [Suspect]
     Active Substance: DINUTUXIMAB
     Dosage: 33.6 MG, TOTAL DAILY DOSE, CYCLE 3
     Route: 041
     Dates: start: 20181126
  4. IPRES [Concomitant]
     Active Substance: INDAPAMIDE
  5. DINUTUXIMAB [Suspect]
     Active Substance: DINUTUXIMAB
     Indication: SMALL CELL LUNG CANCER
     Dosage: CYCLE 1
     Route: 041
     Dates: start: 20181015
  6. SEVREDOL [Concomitant]
     Active Substance: MORPHINE
  7. LOPERAMIDE HYDROCHLORIDE. [Concomitant]
     Active Substance: LOPERAMIDE HYDROCHLORIDE
  8. POLOCARD [Concomitant]
     Active Substance: ASPIRIN
  9. FENTANYL ACTAVIS [FENTANYL] [Concomitant]
  10. PRITOR [TELMISARTAN] [Concomitant]
  11. IRINOTECAN HCL [Suspect]
     Active Substance: IRINOTECAN HYDROCHLORIDE
     Dosage: 672 MG, TOTAL DAILY DOSE, CYCLE 3
     Route: 041
     Dates: start: 20181126
  12. DINUTUXIMAB [Suspect]
     Active Substance: DINUTUXIMAB
     Dosage: UNK
     Route: 041
  13. ZOFRAN [Concomitant]
     Active Substance: ONDANSETRON HYDROCHLORIDE
  14. DIAPREL [Concomitant]
     Active Substance: GLICLAZIDE
  15. ATORIS [Concomitant]
     Active Substance: ATORVASTATIN CALCIUM
  16. IRINOTECAN HCL [Suspect]
     Active Substance: IRINOTECAN HYDROCHLORIDE
     Indication: SMALL CELL LUNG CANCER
     Dosage: CYCLE 1
     Route: 041
     Dates: start: 20181015
  17. IRINOTECAN HCL [Suspect]
     Active Substance: IRINOTECAN HYDROCHLORIDE
     Dosage: UNK
     Route: 041

REACTIONS (1)
  - Lower respiratory tract infection [Recovered/Resolved]

NARRATIVE: CASE EVENT DATE: 20181203
